FAERS Safety Report 16176739 (Version 1)
Quarter: 2019Q2

REPORT INFORMATION
  Report Type: Report from Study
  Country: BR (occurrence: BR)
  Receive Date: 20190409
  Receipt Date: 20190409
  Transmission Date: 20190711
  Serious: Yes (Other)
  Sender: FDA-Public Use
  Company Number: BR-REGENERON PHARMACEUTICALS, INC.-2019-25186

PATIENT

DRUGS (1)
  1. EYLEA [Suspect]
     Active Substance: AFLIBERCEPT
     Indication: AGE-RELATED MACULAR DEGENERATION
     Dosage: OD. TOTAL DOSES AND LAST DOSE PRIOR THE EVENT WERE NOT PROVIDED.
     Route: 031

REACTIONS (2)
  - Vitritis [Recovered/Resolved]
  - Blindness [Not Recovered/Not Resolved]
